FAERS Safety Report 7709933 (Version 7)
Quarter: 2015Q3

REPORT INFORMATION
  Report Type: Spontaneous
  Country: US (occurrence: US)
  Receive Date: 20101214
  Receipt Date: 20150904
  Transmission Date: 20151125
  Serious: No
  Sender: FDA-Public Use
  Company Number: US-ASTRAZENECA-2010SE47805

PATIENT
  Age: 71 Year
  Sex: Female

DRUGS (26)
  1. TENORMIN [Suspect]
     Active Substance: ATENOLOL
     Route: 065
     Dates: start: 2014
  2. ASPIRIN. [Concomitant]
     Active Substance: ASPIRIN
  3. LEVOTHYROXINE. [Concomitant]
     Active Substance: LEVOTHYROXINE
  4. GLIPIZIDE. [Concomitant]
     Active Substance: GLIPIZIDE
  5. CODEINE [Concomitant]
     Active Substance: CODEINE
  6. LOPRESSOR [Concomitant]
     Active Substance: METOPROLOL TARTRATE
  7. CRESTOR [Suspect]
     Active Substance: ROSUVASTATIN CALCIUM
     Route: 048
  8. ERYTHROMYCIN. [Concomitant]
     Active Substance: ERYTHROMYCIN
  9. OMEGA-3+OMEGA-6+OMEGA-9 TRIGLYCERIDES [Concomitant]
  10. ZETIA [Concomitant]
     Active Substance: EZETIMIBE
  11. UROCIT-K [Concomitant]
     Active Substance: POTASSIUM CITRATE
  12. OXYCODONE [Concomitant]
     Active Substance: OXYCODONE
  13. LISINOPRIL. [Concomitant]
     Active Substance: LISINOPRIL
  14. CRESTOR [Suspect]
     Active Substance: ROSUVASTATIN CALCIUM
     Route: 048
  15. OMEPRAZOLE. [Suspect]
     Active Substance: OMEPRAZOLE
     Route: 048
     Dates: start: 201404
  16. VITAMIN E [Concomitant]
     Active Substance: .ALPHA.-TOCOPHEROL
  17. PENICILLIN NOS [Concomitant]
     Active Substance: PENICILLIN
  18. LEVOTHYROXINE. [Concomitant]
     Active Substance: LEVOTHYROXINE
  19. OXYBUTYNIN [Concomitant]
     Active Substance: OXYBUTYNIN
  20. VITAMIN D3 [Concomitant]
     Active Substance: CHOLECALCIFEROL
  21. BILBERRY [Concomitant]
     Active Substance: BILBERRY
     Indication: VISUAL IMPAIRMENT
  22. LEVOTHYROXINE. [Concomitant]
     Active Substance: LEVOTHYROXINE
  23. LISINOPRIL. [Concomitant]
     Active Substance: LISINOPRIL
  24. HYDROCODONE [Concomitant]
     Active Substance: HYDROCODONE
     Dosage: 5/500  AS REQUIRED
  25. VITAMIN B12 [Concomitant]
     Active Substance: CYANOCOBALAMIN
  26. LISINOPRIL. [Concomitant]
     Active Substance: LISINOPRIL

REACTIONS (10)
  - Feeling abnormal [Unknown]
  - Road traffic accident [Unknown]
  - Drug hypersensitivity [Not Recovered/Not Resolved]
  - Renal disorder [Unknown]
  - Blood cholesterol increased [Unknown]
  - Headache [Unknown]
  - Stress [Unknown]
  - Visual field defect [Unknown]
  - Drug ineffective [Unknown]
  - Product used for unknown indication [Not Recovered/Not Resolved]

NARRATIVE: CASE EVENT DATE: 1975
